FAERS Safety Report 20994720 (Version 1)
Quarter: 2022Q2

REPORT INFORMATION
  Report Type: Report from Study
  Country: US (occurrence: None)
  Receive Date: 20220622
  Receipt Date: 20220622
  Transmission Date: 20220720
  Serious: Yes (Hospitalization)
  Sender: FDA-Public Use
  Company Number: US-Eisai Medical Research-EC-2022-117298

PATIENT
  Age: 84 Year
  Sex: Male

DRUGS (12)
  1. LENVIMA [Suspect]
     Active Substance: LENVATINIB
     Indication: Hepatocellular carcinoma
     Route: 048
     Dates: start: 20220202, end: 2022
  2. ATORVASTATIN [Concomitant]
     Active Substance: ATORVASTATIN
  3. LOSARTAN [Concomitant]
     Active Substance: LOSARTAN
  4. MAGNESIUM [Concomitant]
     Active Substance: MAGNESIUM
  5. MELATONIN [Concomitant]
     Active Substance: MELATONIN
  6. MULTI ADULT [Concomitant]
  7. NITROGLYCERIN [Concomitant]
     Active Substance: NITROGLYCERIN
  8. OMEPRAZOLE [Concomitant]
     Active Substance: OMEPRAZOLE
  9. POTASSIUM AC CRY [Concomitant]
  10. TAMSULOSIN [Concomitant]
     Active Substance: TAMSULOSIN
  11. VITAMIN B12 [Concomitant]
     Active Substance: CYANOCOBALAMIN
  12. VITAMIN C [Concomitant]
     Active Substance: ASCORBIC ACID

REACTIONS (1)
  - Infection [Unknown]

NARRATIVE: CASE EVENT DATE: 20220101
